FAERS Safety Report 14859260 (Version 1)
Quarter: 2018Q2

REPORT INFORMATION
  Report Type: Spontaneous
  Country: FR (occurrence: FR)
  Receive Date: 20180508
  Receipt Date: 20180508
  Transmission Date: 20180711
  Serious: Yes (Other)
  Sender: FDA-Public Use
  Company Number: FR-MERCK KGAA-2047386

PATIENT
  Age: 77 Year
  Sex: Female

DRUGS (4)
  1. CARDENSIEL(BISOPROLOL FUMARATE) [Concomitant]
  2. ALDACTONE [Concomitant]
     Active Substance: SPIRONOLACTONE
  3. NOVOTHYROX [Suspect]
     Active Substance: LEVOTHYROXINE SODIUM
     Indication: PRODUCT USED FOR UNKNOWN INDICATION
     Dates: start: 2017, end: 201710
  4. APROVEL(IRBESARTAN) [Concomitant]

REACTIONS (29)
  - Peripheral swelling [None]
  - Musculoskeletal stiffness [None]
  - Blood pressure increased [None]
  - Pain in extremity [None]
  - Initial insomnia [None]
  - Blood potassium increased [None]
  - Weight increased [None]
  - Blood thyroid stimulating hormone decreased [None]
  - Glycosylated haemoglobin increased [None]
  - Psychiatric symptom [None]
  - Tri-iodothyronine free decreased [None]
  - Fatigue [None]
  - Gait disturbance [None]
  - Social avoidant behaviour [None]
  - Palpitations [None]
  - Paralysis [None]
  - Blood urea increased [None]
  - Pain [None]
  - Muscle spasms [None]
  - Syncope [None]
  - Arthralgia [None]
  - Balance disorder [None]
  - Heart rate decreased [None]
  - Emotional distress [None]
  - Irritability [None]
  - Hypercreatininaemia [None]
  - Gait disturbance [None]
  - Loss of personal independence in daily activities [None]
  - Asthenia [None]

NARRATIVE: CASE EVENT DATE: 2017
